FAERS Safety Report 8910679 (Version 4)
Quarter: 2013Q3

REPORT INFORMATION
  Report Type: Spontaneous
  Country: GB (occurrence: None)
  Receive Date: 20121108
  Receipt Date: 20130702
  Transmission Date: 20140515
  Serious: Yes (Other)
  Sender: FDA-Public Use
  Company Number: AUR-APL-2012-04745

PATIENT
  Age: 43 Year
  Sex: Male

DRUGS (3)
  1. RIBAVIRIN [Suspect]
     Indication: HEPATITIS C
     Route: 048
     Dates: start: 20120619, end: 20121126
  2. PEGINTERFERON ALFA- 2B [Suspect]
     Indication: HEPATITIS C
     Dosage: (180 MG, 1 IN 1 WK)
     Route: 058
     Dates: start: 20120619, end: 20121126
  3. TELAPREVIR [Suspect]
     Indication: HEPATITIS C
     Dosage: 2250 MG (750 MG, 3 IN 1 D)
     Route: 048
     Dates: start: 20120619, end: 20120911

REACTIONS (17)
  - Aggression [None]
  - Headache [None]
  - Diarrhoea [None]
  - Injection site rash [None]
  - Oral candidiasis [None]
  - Mood swings [None]
  - Suicidal ideation [None]
  - Insomnia [None]
  - Nausea [None]
  - Aggression [None]
  - Rectal haemorrhage [None]
  - Proctalgia [None]
  - Fatigue [None]
  - Aggression [None]
  - Proctalgia [None]
  - Feeling cold [None]
  - Faeces discoloured [None]
